FAERS Safety Report 7119254-6 (Version None)
Quarter: 2010Q4

REPORT INFORMATION
  Report Type: 
  Country: None (occurrence: None)
  Receive Date: 20101028
  Receipt Date: 20100830
  Transmission Date: 20110411
  Serious: Yes (Hospitalization)
  Sender: FDA-Public Use
  Company Number: A-US2010-39444

PATIENT
  Sex: Female

DRUGS (2)
  1. EPOPROSTENOL SODIUM [Suspect]
     Indication: PULMONARY ARTERIAL HYPERTENSION
     Dosage: 25 NG/KG
     Dates: start: 20100618
  2. COUMADIN [Concomitant]

REACTIONS (3)
  - DEVICE RELATED INFECTION [None]
  - ERYTHEMA [None]
  - INFUSION SITE PAIN [None]
